FAERS Safety Report 23720216 (Version 1)
Quarter: 2024Q2

REPORT INFORMATION
  Report Type: Spontaneous
  Country: GB (occurrence: GB)
  Receive Date: 20240408
  Receipt Date: 20240408
  Transmission Date: 20240716
  Serious: Yes (Hospitalization, Other)
  Sender: FDA-Public Use
  Company Number: GB-MYLANLABS-2024M1030214

PATIENT
  Sex: Male

DRUGS (2)
  1. CLOZARIL [Suspect]
     Active Substance: CLOZAPINE
     Indication: Schizophrenia
     Dosage: 475 MILLIGRAM
     Route: 048
     Dates: start: 20170502
  2. CLOZARIL [Suspect]
     Active Substance: CLOZAPINE
     Dosage: 400 MILLIGRAM
     Route: 065

REACTIONS (5)
  - Tachycardia [Unknown]
  - Palpitations [Unknown]
  - Myocarditis [Unknown]
  - Memory impairment [Unknown]
  - Antipsychotic drug level increased [Not Recovered/Not Resolved]
